FAERS Safety Report 10557082 (Version 3)
Quarter: 2014Q4

REPORT INFORMATION
  Report Type: Spontaneous
  Country: US (occurrence: US)
  Receive Date: 20141031
  Receipt Date: 20141105
  Transmission Date: 20150529
  Serious: Yes (Hospitalization, Other)
  Sender: FDA-Public Use
  Company Number: US-GSKJP-DK201110930002

PATIENT
  Age: 81 Year
  Sex: Female
  Weight: 61.68 kg

DRUGS (19)
  1. AUGMENTIN [Concomitant]
     Active Substance: AMOXICILLIN\CLAVULANATE POTASSIUM
  2. FLUCONAZOLE. [Concomitant]
     Active Substance: FLUCONAZOLE
  3. LEVAQUIN [Concomitant]
     Active Substance: LEVOFLOXACIN
  4. MULTIVITAMIN [Concomitant]
     Active Substance: VITAMINS
  5. PRILOSEC [Concomitant]
     Active Substance: OMEPRAZOLE MAGNESIUM
  6. LYRICA [Concomitant]
     Active Substance: PREGABALIN
  7. HYDROCODONE [Concomitant]
     Active Substance: HYDROCODONE
  8. MELPHALAN [Suspect]
     Active Substance: MELPHALAN
     Indication: PLASMA CELL MYELOMA
     Dosage: 14 MG, CYC
     Route: 048
     Dates: start: 20100924, end: 20111024
  9. ALBUTEROL. [Concomitant]
     Active Substance: ALBUTEROL
  10. PREDNISONE. [Suspect]
     Active Substance: PREDNISONE
     Indication: PLASMA CELL MYELOMA
     Dosage: 100 MG, QD
     Route: 048
     Dates: start: 20100924, end: 20111024
  11. POTASSIUM [Concomitant]
     Active Substance: POTASSIUM
  12. MUCINEX [Concomitant]
     Active Substance: GUAIFENESIN
  13. LASIX [Concomitant]
     Active Substance: FUROSEMIDE
  14. METOPROLOL [Concomitant]
     Active Substance: METOPROLOL
  15. ROBITUSSIN (GUAIFENESIN) [Concomitant]
     Active Substance: GUAIFENESIN
  16. SYNTHROID [Concomitant]
     Active Substance: LEVOTHYROXINE SODIUM
  17. AMIODARONE [Concomitant]
     Active Substance: AMIODARONE
  18. NEURONTIN [Concomitant]
     Active Substance: GABAPENTIN
  19. VALTREX [Concomitant]
     Active Substance: VALACYCLOVIR HYDROCHLORIDE

REACTIONS (5)
  - Pneumonia [Recovered/Resolved]
  - Aspiration [Recovered/Resolved]
  - Ill-defined disorder [Recovered/Resolved]
  - Cough [Recovered/Resolved]
  - Atrial fibrillation [Unknown]

NARRATIVE: CASE EVENT DATE: 20110312
